FAERS Safety Report 11272178 (Version 1)
Quarter: 2015Q3

REPORT INFORMATION
  Report Type: Spontaneous
  Country: US (occurrence: None)
  Receive Date: 20150713
  Receipt Date: 20150713
  Transmission Date: 20151125
  Serious: Yes (Hospitalization)
  Sender: FDA-Public Use
  Company Number: None

PATIENT
  Age: 48 Year
  Sex: Female

DRUGS (10)
  1. FISH OIL [Concomitant]
     Active Substance: FISH OIL
  2. TEMAZEPAM. [Concomitant]
     Active Substance: TEMAZEPAM
  3. PROGESTERONE. [Concomitant]
     Active Substance: PROGESTERONE
  4. FOLIC ACID. [Concomitant]
     Active Substance: FOLIC ACID
  5. VITAMIN D [Concomitant]
     Active Substance: CHOLECALCIFEROL
  6. BIOTIN [Concomitant]
     Active Substance: BIOTIN
  7. METHOTREXATE [Concomitant]
     Active Substance: METHOTREXATE
  8. REMICADE [Suspect]
     Active Substance: INFLIXIMAB
     Indication: RHEUMATOID ARTHRITIS
     Dosage: 500MG  EVERY 8 WEEKS  INTRAVENOUS (NOT OTHERWISE SPECIFIED)
     Route: 042
     Dates: start: 201408, end: 201503
  9. ADVIL [Concomitant]
     Active Substance: IBUPROFEN
  10. ARMOUR THYROID [Concomitant]
     Active Substance: THYROID, PORCINE\THYROID, UNSPECIFIED

REACTIONS (5)
  - Infusion related reaction [None]
  - Blood pressure increased [None]
  - Loss of consciousness [None]
  - Blood pressure decreased [None]
  - Anxiety [None]
